FAERS Safety Report 18701772 (Version 1)
Quarter: 2021Q1

REPORT INFORMATION
  Report Type: Spontaneous
  Country: US (occurrence: US)
  Receive Date: 20210105
  Receipt Date: 20210105
  Transmission Date: 20210419
  Serious: Yes (Hospitalization)
  Sender: FDA-Public Use
  Company Number: US-LUPIN PHARMACEUTICALS INC.-2020-11322

PATIENT
  Age: 72 Year
  Sex: Male

DRUGS (6)
  1. FAMOTIDINE. [Suspect]
     Active Substance: FAMOTIDINE
     Indication: EROSIVE OESOPHAGITIS
  2. PANTOPRAZOLE [Suspect]
     Active Substance: PANTOPRAZOLE
     Indication: GASTRINOMA
     Dosage: 240 MILLIGRAM, QD
     Route: 065
  3. FAMOTIDINE. [Suspect]
     Active Substance: FAMOTIDINE
     Indication: OESOPHAGEAL STENOSIS
  4. PANTOPRAZOLE [Suspect]
     Active Substance: PANTOPRAZOLE
     Indication: OESOPHAGEAL STENOSIS
  5. PANTOPRAZOLE [Suspect]
     Active Substance: PANTOPRAZOLE
     Indication: EROSIVE OESOPHAGITIS
  6. FAMOTIDINE. [Suspect]
     Active Substance: FAMOTIDINE
     Indication: GASTRINOMA
     Dosage: 80 MILLIGRAM, QD
     Route: 065

REACTIONS (1)
  - Drug ineffective [Unknown]
